FAERS Safety Report 11446007 (Version 1)
Quarter: 2015Q3

REPORT INFORMATION
  Report Type: Spontaneous
  Country: US (occurrence: US)
  Receive Date: 20150831
  Receipt Date: 20150831
  Transmission Date: 20151125
  Serious: No
  Sender: FDA-Public Use
  Company Number: US-ELI_LILLY_AND_COMPANY-US200808003179

PATIENT
  Age: 27 Year
  Sex: Female

DRUGS (2)
  1. CYMBALTA [Suspect]
     Active Substance: DULOXETINE HYDROCHLORIDE
     Dosage: 60 MG, DAILY (1/D)
  2. CYMBALTA [Suspect]
     Active Substance: DULOXETINE HYDROCHLORIDE
     Indication: FIBROMYALGIA
     Dosage: 30 MG, DAILY (1/D)
     Route: 048

REACTIONS (17)
  - Fatigue [Unknown]
  - Feeling abnormal [Unknown]
  - Anxiety [Unknown]
  - Feeling drunk [Unknown]
  - Paraesthesia [Unknown]
  - Headache [Unknown]
  - Irritability [Unknown]
  - Suicidal ideation [Unknown]
  - Drug ineffective [Unknown]
  - Dizziness [Unknown]
  - Mania [Unknown]
  - Depression [Unknown]
  - Pain [Recovered/Resolved]
  - Pyrexia [Unknown]
  - Vertigo [Unknown]
  - Dysphoria [Unknown]
  - Confusional state [Unknown]

NARRATIVE: CASE EVENT DATE: 200712
